FAERS Safety Report 10659557 (Version 2)
Quarter: 2014Q4

REPORT INFORMATION
  Report Type: Report from Study
  Country: US (occurrence: US)
  Receive Date: 20141217
  Receipt Date: 20141217
  Transmission Date: 20150529
  Serious: Yes (Other)
  Sender: FDA-Public Use
  Company Number: US-GLAXOSMITHKLINE-A0934844A

PATIENT
  Age: 52 Year
  Sex: Female
  Weight: 79 kg

DRUGS (3)
  1. LAPATINIB TOSILATE TABLET [Suspect]
     Active Substance: LAPATINIB DITOSYLATE
     Indication: BREAST CANCER
     Dosage: 750 MG, QD
     Route: 048
     Dates: start: 20100520, end: 20100728
  2. DOCETAXEL. [Suspect]
     Active Substance: DOCETAXEL
     Indication: BREAST CANCER
     Dosage: 75 MG/M2, CYC
     Route: 042
     Dates: start: 20100520, end: 20100902
  3. CARBOPLATIN. [Suspect]
     Active Substance: CARBOPLATIN
     Indication: BREAST CANCER
     Dosage: UNK, CYC
     Route: 042
     Dates: start: 20100520, end: 20100901

REACTIONS (2)
  - Aspartate aminotransferase increased [Recovered/Resolved]
  - Alanine aminotransferase increased [Recovered/Resolved]

NARRATIVE: CASE EVENT DATE: 20100603
